FAERS Safety Report 15546581 (Version 1)
Quarter: 2018Q4

REPORT INFORMATION
  Report Type: Spontaneous
  Country: US (occurrence: US)
  Receive Date: 20181023
  Receipt Date: 20181023
  Transmission Date: 20190205
  Serious: Yes (Life-Threatening, Hospitalization)
  Sender: FDA-Public Use
  Company Number: None

PATIENT
  Age: 63 Year
  Sex: Male
  Weight: 135 kg

DRUGS (15)
  1. RIFAMPIN. [Concomitant]
     Active Substance: RIFAMPIN
  2. PROCRIT [Concomitant]
     Active Substance: ERYTHROPOIETIN
  3. VITAMIN C [Concomitant]
     Active Substance: ASCORBIC ACID
  4. DESMOPRESSIN ACETATE. [Concomitant]
     Active Substance: DESMOPRESSIN ACETATE
  5. IRON [Concomitant]
     Active Substance: IRON
  6. VITAMIN D [Concomitant]
     Active Substance: CHOLECALCIFEROL
  7. INVOKANA [Suspect]
     Active Substance: CANAGLIFLOZIN
     Indication: TYPE 2 DIABETES MELLITUS
     Route: 048
     Dates: start: 20140915, end: 20141222
  8. TAMSULOSIN [Concomitant]
     Active Substance: TAMSULOSIN
  9. SULFAMETHOXAZOLE-TMP [Concomitant]
     Active Substance: SULFAMETHOXAZOLE\TRIMETHOPRIM
  10. PRIMROSE [Concomitant]
  11. BEANO [Concomitant]
     Active Substance: ASPERGILLUS NIGER .ALPHA.-GALACTOSIDASE
  12. GABAPENTIN. [Concomitant]
     Active Substance: GABAPENTIN
  13. LANTUS GLARGINE [Concomitant]
  14. PIOGLITAZONE HCL [Concomitant]
     Active Substance: PIOGLITAZONE
  15. CENTRUM MULTIVITAMIN FOR MEN OVER 50 [Concomitant]

REACTIONS (17)
  - Heart rate increased [None]
  - Infection [None]
  - Dysphagia [None]
  - Asthenia [None]
  - Pyrexia [None]
  - Ketoacidosis [None]
  - Coma [None]
  - Dysstasia [None]
  - Skin graft [None]
  - Feeding disorder [None]
  - Vomiting [None]
  - Disorientation [None]
  - Blood pressure decreased [None]
  - Scrotal swelling [None]
  - Urinary incontinence [None]
  - Haematemesis [None]
  - Fournier^s gangrene [None]

NARRATIVE: CASE EVENT DATE: 20141226
